FAERS Safety Report 5643163-2 (Version None)
Quarter: 2008Q1

REPORT INFORMATION
  Report Type: 
  Country: None (occurrence: None)
  Receive Date: 20080228
  Receipt Date: 20080221
  Transmission Date: 20080703
  Serious: Yes (Death, Hospitalization, Other)
  Sender: FDA-Public Use
  Company Number: FR-AVENTIS-200713774FR

PATIENT
  Age: 60 Year
  Sex: Female
  Weight: 50 kg

DRUGS (11)
  1. ARAVA [Suspect]
     Indication: RHEUMATOID ARTHRITIS
     Route: 048
     Dates: start: 20060401, end: 20071122
  2. CORTANCYL [Suspect]
     Indication: RHEUMATOID ARTHRITIS
     Route: 048
     Dates: end: 20060919
  3. CORTANCYL [Suspect]
     Route: 048
     Dates: start: 20060919, end: 20070212
  4. CORTANCYL [Suspect]
     Route: 048
     Dates: start: 20070213, end: 20071113
  5. CORTANCYL [Suspect]
     Route: 048
     Dates: start: 20071114, end: 20071122
  6. CORTANCYL [Suspect]
     Route: 048
     Dates: start: 20071122
  7. OMEPRAZOLE [Concomitant]
     Indication: PROPHYLAXIS
     Route: 048
  8. CALCIPRAT D3 [Concomitant]
     Route: 048
  9. ISOPTIN [Concomitant]
     Route: 048
  10. KETOPROFEN [Concomitant]
     Indication: RHEUMATOID ARTHRITIS
     Route: 048
  11. EFFERALGAN CODEINE [Concomitant]
     Route: 048

REACTIONS (9)
  - ABDOMINAL PAIN [None]
  - ASCITES [None]
  - BLOOD ALKALINE PHOSPHATASE INCREASED [None]
  - CHOLESTASIS [None]
  - CONDITION AGGRAVATED [None]
  - LIPASE INCREASED [None]
  - NAUSEA [None]
  - PANCREATITIS NECROTISING [None]
  - PRURITUS [None]
